FAERS Safety Report 19416891 (Version 1)
Quarter: 2021Q2

REPORT INFORMATION
  Report Type: Spontaneous
  Country: CA (occurrence: CA)
  Receive Date: 20210614
  Receipt Date: 20210614
  Transmission Date: 20210717
  Serious: Yes (Hospitalization, Other)
  Sender: FDA-Public Use
  Company Number: CA-BIOMARINAP-CA-2021-136942

PATIENT
  Age: 54 Year
  Sex: Female
  Weight: 99 kg

DRUGS (2)
  1. KUVAN [Suspect]
     Active Substance: SAPROPTERIN DIHYDROCHLORIDE
     Indication: PHENYLKETONURIA
     Dosage: 2000 MILLIGRAM, QD
     Route: 048
     Dates: start: 2010
  2. LEVODOPA [Concomitant]
     Active Substance: LEVODOPA
     Indication: PARKINSONISM

REACTIONS (2)
  - Fall [Unknown]
  - Disability [Not Recovered/Not Resolved]
